FAERS Safety Report 7364192-7 (Version None)
Quarter: 2011Q1

REPORT INFORMATION
  Report Type: 
  Country: None (occurrence: None)
  Receive Date: 20110321
  Receipt Date: 20110209
  Transmission Date: 20110831
  Serious: Yes (Hospitalization, Other)
  Sender: FDA-Public Use
  Company Number: US-BAYER-201029293NA

PATIENT
  Sex: Female
  Weight: 125 kg

DRUGS (16)
  1. SINGULAIR [Concomitant]
     Indication: ASTHMA
     Dosage: DAILY DOSE 10 MG
     Route: 048
     Dates: start: 20030101, end: 20100101
  2. SYNTHROID [Concomitant]
     Indication: HYPOTHYROIDISM
     Dosage: 112 ?G, UNK
     Route: 048
     Dates: start: 20030101
  3. ASMANEX TWISTHALER [Concomitant]
     Indication: ASTHMA
  4. GLUCOPHAGE [Concomitant]
     Dosage: 500 MG, TID
     Route: 048
  5. SPIRIVA [Concomitant]
     Indication: ASTHMA
     Dosage: UNK UNK, QD
     Route: 055
     Dates: start: 20030101
  6. LORATADINE [Concomitant]
     Indication: MULTIPLE ALLERGIES
  7. YAZ [Suspect]
     Indication: PRODUCT USED FOR UNKNOWN INDICATION
     Route: 048
     Dates: start: 19991101, end: 20050122
  8. ALBUTEROL [Concomitant]
     Indication: ASTHMA
     Dosage: 2 DF, UNK
     Route: 055
     Dates: start: 20030101, end: 20090101
  9. PREDNISONE [Concomitant]
     Route: 048
  10. ADVAIR DISKUS 100/50 [Concomitant]
     Indication: ASTHMA
     Dosage: ONCE OR TWICE DAILY
     Route: 055
     Dates: start: 20030101
  11. METFORMIN [Concomitant]
     Indication: GLUCOSE TOLERANCE IMPAIRED
     Dosage: UNK
     Dates: start: 20030101
  12. YASMIN [Suspect]
     Indication: PRODUCT USED FOR UNKNOWN INDICATION
     Route: 048
     Dates: start: 19991101, end: 20050122
  13. WELLBUTRIN [Concomitant]
     Indication: DEPRESSION
     Dosage: UNK
     Dates: start: 20000101
  14. ANTIBIOTICS [Concomitant]
  15. HERBAL PREPARATION [Suspect]
  16. VICODIN [Concomitant]

REACTIONS (7)
  - PULMONARY CONGESTION [None]
  - PRODUCTIVE COUGH [None]
  - PULMONARY EMBOLISM [None]
  - TENSION [None]
  - DYSPNOEA [None]
  - ANXIETY [None]
  - PLEURITIC PAIN [None]
